FAERS Safety Report 9636529 (Version 1)
Quarter: 2013Q4

REPORT INFORMATION
  Report Type: Spontaneous
  Country: US (occurrence: None)
  Receive Date: 20131017
  Receipt Date: 20131017
  Transmission Date: 20140711
  Serious: No
  Sender: FDA-Public Use
  Company Number: FK201304550

PATIENT
  Sex: 0

DRUGS (1)
  1. HALOPERIDOL INJECTION (HALOPERIDOL LACTATE) [Suspect]
     Indication: PRODUCT USED FOR UNKNOWN INDICATION
     Route: 042

REACTIONS (2)
  - Drug administration error [None]
  - Loss of consciousness [None]
